FAERS Safety Report 11032517 (Version 1)
Quarter: 2015Q2

REPORT INFORMATION
  Report Type: Report from Study
  Country: DE (occurrence: DE)
  Receive Date: 20150415
  Receipt Date: 20150415
  Transmission Date: 20150821
  Serious: Yes (Other)
  Sender: FDA-Public Use
  Company Number: DE-MYLANLABS-2015M1012563

PATIENT

DRUGS (10)
  1. LEVOTHYROXINE SODIUM. [Suspect]
     Active Substance: LEVOTHYROXINE SODIUM
     Route: 065
  2. CARBAMAZEPINE. [Suspect]
     Active Substance: CARBAMAZEPINE
     Route: 065
  3. OLANZAPINE. [Suspect]
     Active Substance: OLANZAPINE
     Route: 065
  4. HERBAL NOS [Suspect]
     Active Substance: HERBALS
     Indication: VIRAL INFECTION
     Dosage: 1 X 20 DROPS DAILY
     Route: 065
     Dates: start: 20110226, end: 20110301
  5. ASPIRIN. [Suspect]
     Active Substance: ASPIRIN
     Route: 065
  6. VALPROATE [Suspect]
     Active Substance: VALPROATE SODIUM
     Route: 065
  7. LANSOPRAZOLE. [Suspect]
     Active Substance: LANSOPRAZOLE
     Route: 065
  8. FUROSEMIDE. [Suspect]
     Active Substance: FUROSEMIDE
     Route: 065
  9. ALLOPURINOL. [Suspect]
     Active Substance: ALLOPURINOL
     Route: 065
  10. CANRENOIC ACID [Suspect]
     Active Substance: CANRENOIC ACID
     Route: 065

REACTIONS (1)
  - Drug-induced liver injury [Unknown]
